APPROVED DRUG PRODUCT: INLEXZO
Active Ingredient: GEMCITABINE HYDROCHLORIDE
Strength: EQ 225MG BASE
Dosage Form/Route: SYSTEM;INTRAVESICAL
Application: N219683 | Product #001
Applicant: JANSSEN BIOTECH INC
Approved: Sep 9, 2025 | RLD: Yes | RS: Yes | Type: RX

PATENTS:
Patent 8679094 | Expires: Apr 15, 2032
Patent 10729823 | Expires: Aug 19, 2034
Patent 12403086 | Expires: Jun 28, 2030
Patent 12447241 | Expires: Aug 19, 2034

EXCLUSIVITY:
Code: NP | Date: Sep 9, 2028